FAERS Safety Report 17631294 (Version 2)
Quarter: 2020Q2

REPORT INFORMATION
  Report Type: Spontaneous
  Country: US (occurrence: US)
  Receive Date: 20200406
  Receipt Date: 20200409
  Transmission Date: 20200713
  Serious: Yes (Other)
  Sender: FDA-Public Use
  Company Number: US-PFIZER INC-2020139533

PATIENT
  Age: 45 Year
  Sex: Male
  Weight: 130 kg

DRUGS (2)
  1. TESTOSTERONE ENANTHATE. [Suspect]
     Active Substance: TESTOSTERONE ENANTHATE
     Indication: MUSCLE BUILDING THERAPY
  2. DECA-DURABOLIN [Suspect]
     Active Substance: NANDROLONE DECANOATE
     Indication: MUSCLE BUILDING THERAPY
     Dosage: UNK

REACTIONS (5)
  - Off label use [Unknown]
  - Product use in unapproved indication [Unknown]
  - Focal segmental glomerulosclerosis [Unknown]
  - Acute kidney injury [Unknown]
  - Drug abuse [Unknown]
